FAERS Safety Report 15701016 (Version 5)
Quarter: 2020Q3

REPORT INFORMATION
  Report Type: Spontaneous
  Country: CZ (occurrence: CZ)
  Receive Date: 20181207
  Receipt Date: 20200925
  Transmission Date: 20201102
  Serious: Yes (Hospitalization, Other)
  Sender: FDA-Public Use
  Company Number: PHHY2018CZ174983

PATIENT
  Age: 9 Year
  Sex: Female
  Weight: 30 kg

DRUGS (3)
  1. LINEZOLID. [Suspect]
     Active Substance: LINEZOLID
     Indication: MYCOBACTERIAL INFECTION
  2. LINEZOLID. [Suspect]
     Active Substance: LINEZOLID
     Indication: MYCOBACTERIUM ABSCESSUS INFECTION
     Route: 042
  3. LINEZOLID. [Suspect]
     Active Substance: LINEZOLID
     Indication: PLEURAL FIBROSIS

REACTIONS (11)
  - Vomiting [Recovered/Resolved]
  - Altered state of consciousness [Recovered/Resolved]
  - Product use in unapproved indication [Unknown]
  - Kussmaul respiration [Recovered/Resolved]
  - Product use issue [Unknown]
  - Cognitive disorder [Unknown]
  - Nausea [Unknown]
  - Toxicity to various agents [Unknown]
  - Neuropathy peripheral [Unknown]
  - Myelosuppression [Unknown]
  - Lactic acidosis [Recovered/Resolved]
